FAERS Safety Report 15445569 (Version 3)
Quarter: 2018Q4

REPORT INFORMATION
  Report Type: Report from Study
  Country: None (occurrence: RU)
  Receive Date: 20180928
  Receipt Date: 20181016
  Transmission Date: 20190204
  Serious: Yes (Life-Threatening, Other)
  Sender: FDA-Public Use
  Company Number: RU-ABBVIE-18P-251-2496768-00

PATIENT
  Age: 67 Year
  Sex: Female
  Weight: 46 kg

DRUGS (1)
  1. DUODOPA [Suspect]
     Active Substance: CARBIDOPA\LEVODOPA
     Indication: PARKINSON^S DISEASE
     Dosage: 4.8 ML/HR, AS NEEDED, FLEXIBLE DOSE (UP AND DOWN)
     Route: 050
     Dates: start: 20090421

REACTIONS (1)
  - Stoma site discharge [Recovered/Resolved]

NARRATIVE: CASE EVENT DATE: 20180920
